FAERS Safety Report 11335607 (Version 1)
Quarter: 2015Q3

REPORT INFORMATION
  Report Type: Spontaneous
  Country: DE (occurrence: DE)
  Receive Date: 20150804
  Receipt Date: 20150804
  Transmission Date: 20151125
  Serious: Yes (Death, Congenital Anomaly)
  Sender: FDA-Public Use
  Company Number: DE-PFIZER INC-2015254797

PATIENT
  Sex: Male
  Weight: .38 kg

DRUGS (6)
  1. METFORMIN HCL [Suspect]
     Active Substance: METFORMIN HYDROCHLORIDE
     Indication: POLYCYSTIC OVARIES
     Dosage: UNK, 1 TRIMESTER (0 - 6.1 GESTATIONAL WEEK)
     Route: 064
     Dates: start: 20140625, end: 20140807
  2. PAROXETINE [Suspect]
     Active Substance: PAROXETINE\PAROXETINE HYDROCHLORIDE
     Dosage: 30 MG, DAILY (1 TRIMESTER, 0 - 21.3 GESTATIONAL WEEK), NO INTAKE IN GESTATIONAL WEEK 4+0 UNTIL 8+5)
     Route: 064
     Dates: start: 20140826, end: 20141122
  3. SERTRALINE HCL [Suspect]
     Active Substance: SERTRALINE HYDROCHLORIDE
     Indication: ANXIETY DISORDER
     Dosage: UNK, 1 TRIMESTER (4 - 8.5 GESTATIONAL WEEK)
     Route: 064
     Dates: start: 20140723, end: 20140825
  4. SALBUTAMOL [Concomitant]
     Active Substance: ALBUTEROL
     Indication: ASTHMA
     Dosage: UNK (1 TRIMESTER, 0 - 21.3 GESTATIONAL WEEK), AS NEEDED
     Route: 064
     Dates: start: 20140625, end: 20141122
  5. PAROXETINE [Suspect]
     Active Substance: PAROXETINE\PAROXETINE HYDROCHLORIDE
     Indication: ANXIETY DISORDER
     Dosage: 30 MG, DAILY (1 TRIMESTER, 0 - 21.3 GESTATIONAL WEEK), NO INTAKE IN GESTATIONAL WEEK 4+0 UNTIL 8+5)
     Route: 064
     Dates: start: 20140625, end: 20140722
  6. JUNIK [Concomitant]
     Active Substance: BECLOMETHASONE DIPROPIONATE
     Indication: ASTHMA
     Dosage: 0.1 MG, 2X/DAY (1 TRIMESTER, 0 - 21.3 GESTATIONAL WEEK)
     Route: 064
     Dates: start: 20140625, end: 20141122

REACTIONS (2)
  - Congenital hydrocephalus [Fatal]
  - Maternal exposure during pregnancy [Fatal]

NARRATIVE: CASE EVENT DATE: 201411
